FAERS Safety Report 8347864-7 (Version None)
Quarter: 2012Q2

REPORT INFORMATION
  Report Type: 
  Country: None (occurrence: None)
  Receive Date: 20120509
  Receipt Date: 20120426
  Transmission Date: 20120825
  Serious: Yes (Hospitalization)
  Sender: FDA-Public Use
  Company Number: IE-ELI_LILLY_AND_COMPANY-IE201204009177

PATIENT
  Sex: Female

DRUGS (7)
  1. FORTEO [Suspect]
     Indication: OSTEOPOROSIS
     Dosage: 20 UG, UNK
     Route: 058
     Dates: start: 20120123
  2. MORPHINE [Concomitant]
  3. MOTILIUM [Concomitant]
  4. ACETAMINOPHEN W/ CODEINE [Concomitant]
  5. CAPRIN [Concomitant]
  6. LYRICA [Concomitant]
  7. TOLTERODINE TARTRATE [Concomitant]

REACTIONS (1)
  - LOWER RESPIRATORY TRACT INFECTION [None]
